FAERS Safety Report 5300411-6 (Version None)
Quarter: 2007Q2

REPORT INFORMATION
  Report Type: 
  Country: None (occurrence: None)
  Receive Date: 20070413
  Receipt Date: 20070413
  Transmission Date: 20071010
  Serious: Yes (Hospitalization)
  Sender: FDA-Public Use
  Company Number: None

PATIENT
  Sex: Female
  Weight: 77 kg

DRUGS (10)
  1. BACTRIM [Suspect]
     Indication: INFECTION
     Dosage: 2 TABLETS BID (PO)
     Route: 048
  2. RANITIDINE [Concomitant]
  3. QUETIAPINE FUMARATE [Concomitant]
  4. VICODIN [Concomitant]
  5. LEVOTHYROXINE SODIUM [Concomitant]
  6. VENLAFAXINE HCL [Concomitant]
  7. TRAMADOL HCL [Concomitant]
  8. IBUPROFEN [Concomitant]
  9. CYCLOBENZAPRINE HCL [Concomitant]
  10. SIMVASTATIN [Concomitant]

REACTIONS (3)
  - DIARRHOEA [None]
  - NAUSEA [None]
  - VOMITING [None]
